FAERS Safety Report 6833589-3 (Version None)
Quarter: 2010Q3

REPORT INFORMATION
  Report Type: 
  Country: None (occurrence: None)
  Receive Date: 20100712
  Receipt Date: 20100629
  Transmission Date: 20110219
  Serious: Yes (Death, Hospitalization, Other)
  Sender: FDA-Public Use
  Company Number: NZ-ELI_LILLY_AND_COMPANY-NZ201006005562

PATIENT
  Age: 49 Year
  Sex: Female

DRUGS (5)
  1. OLANZAPINE [Suspect]
     Indication: SCHIZOPHRENIA
     Dosage: 30 MG, UNK
  2. OLANZAPINE [Suspect]
     Dosage: UNK, UNKNOWN
     Route: 065
     Dates: end: 20100120
  3. OLANZAPINE [Suspect]
     Dosage: 30 MG, UNK
     Dates: start: 20100203, end: 20100624
  4. OLANZAPINE [Suspect]
     Dosage: 20 MG, UNK
  5. LORAZEPAM [Concomitant]
     Dosage: 10 MG, UNK

REACTIONS (6)
  - CATATONIA [None]
  - EATING DISORDER [None]
  - HAEMORRHAGE [None]
  - OVERDOSE [None]
  - SUDDEN DEATH [None]
  - TRACHEAL INJURY [None]
